FAERS Safety Report 7225447-X (Version None)
Quarter: 2011Q1

REPORT INFORMATION
  Report Type: 
  Country: None (occurrence: None)
  Receive Date: 20110113
  Receipt Date: 20110110
  Transmission Date: 20110831
  Serious: No
  Sender: FDA-Public Use
  Company Number: US-PFIZER INC-2011006651

PATIENT
  Sex: Female

DRUGS (1)
  1. PREMARIN [Suspect]
     Route: 067

REACTIONS (1)
  - VULVOVAGINAL BURNING SENSATION [None]
